FAERS Safety Report 8617666-2 (Version None)
Quarter: 2012Q3

REPORT INFORMATION
  Report Type: 
  Country: None (occurrence: None)
  Receive Date: 20120824
  Receipt Date: 20120109
  Transmission Date: 20120928
  Serious: No
  Sender: FDA-Public Use
  Company Number: US-ASTRAZENECA-2012SE01492

PATIENT
  Age: 67 Year
  Sex: Male
  Weight: 62.6 kg

DRUGS (5)
  1. SYMBICORT [Suspect]
     Indication: CHRONIC OBSTRUCTIVE PULMONARY DISEASE
     Dosage: 160/4.5, 2 PUFFS BID
     Route: 055
     Dates: start: 20111228
  2. SPIRIVA [Concomitant]
  3. CITALOPRAM HYDROBROMIDE [Concomitant]
  4. NEBULIZERS [Concomitant]
  5. OXYGEN THERAPY [Concomitant]

REACTIONS (1)
  - INCREASED APPETITE [None]
